FAERS Safety Report 22393241 (Version 1)
Quarter: 2023Q2

REPORT INFORMATION
  Report Type: Other
  Country: JP (occurrence: JP)
  Receive Date: 20230601
  Receipt Date: 20230601
  Transmission Date: 20230722
  Serious: Yes (Other)
  Sender: FDA-Public Use
  Company Number: JP-GEHPL-2023JSU004143AA

PATIENT
  Age: 62 Year
  Sex: Female
  Weight: 48 kg

DRUGS (2)
  1. OMNIPAQUE [Suspect]
     Active Substance: IOHEXOL
     Indication: Computerised tomogram
     Dosage: 100 ML, SINGLE
     Route: 042
     Dates: start: 20230523, end: 20230523
  2. OMNIPAQUE [Suspect]
     Active Substance: IOHEXOL
     Indication: Product used for unknown indication

REACTIONS (3)
  - Cerebral vasoconstriction [Unknown]
  - Amnesia [Recovered/Resolved]
  - Oropharyngeal discomfort [Recovered/Resolved]

NARRATIVE: CASE EVENT DATE: 20230523
